FAERS Safety Report 11637005 (Version 1)
Quarter: 2015Q4

REPORT INFORMATION
  Report Type: Spontaneous
  Country: US (occurrence: None)
  Receive Date: 20151015
  Receipt Date: 20151015
  Transmission Date: 20160304
  Serious: No
  Sender: FDA-Public Use
  Company Number: None

PATIENT
  Age: 65 Year
  Sex: Female
  Weight: 45.36 kg

DRUGS (1)
  1. VALSARTAN/HCTZ 320/12.5 [Suspect]
     Active Substance: HYDROCHLOROTHIAZIDE\VALSARTAN
     Indication: HYPERTENSION
     Route: 048
     Dates: start: 20151012, end: 20151014

REACTIONS (2)
  - Product size issue [None]
  - Product commingling [None]

NARRATIVE: CASE EVENT DATE: 20151013
